FAERS Safety Report 17420808 (Version 1)
Quarter: 2020Q1

REPORT INFORMATION
  Report Type: Spontaneous
  Country: HR (occurrence: HR)
  Receive Date: 20200214
  Receipt Date: 20200214
  Transmission Date: 20200409
  Serious: Yes (Other)
  Sender: FDA-Public Use
  Company Number: HR-PFIZER INC-2020064157

PATIENT
  Age: 38 Year
  Sex: Female
  Weight: 61 kg

DRUGS (1)
  1. DALACIN C [Suspect]
     Active Substance: CLINDAMYCIN PHOSPHATE
     Indication: BACTERIAL INFECTION
     Dosage: 900 MG, DAILY (EVERY 8 HOURS)
     Route: 048
     Dates: start: 20200103, end: 20200103

REACTIONS (5)
  - Throat tightness [Recovered/Resolved]
  - Pharyngeal swelling [Recovered/Resolved]
  - Dry throat [Recovered/Resolved]
  - Dysphagia [Recovered/Resolved]
  - Angioedema [Recovered/Resolved]

NARRATIVE: CASE EVENT DATE: 20200103
